FAERS Safety Report 23391949 (Version 1)
Quarter: 2024Q1

REPORT INFORMATION
  Report Type: Spontaneous
  Country: US (occurrence: US)
  Receive Date: 20240111
  Receipt Date: 20240111
  Transmission Date: 20240410
  Serious: No
  Sender: FDA-Public Use
  Company Number: US-NAPO PHARMACEUTICALS-2023US000324

PATIENT
  Sex: Male

DRUGS (1)
  1. MYTESI [Suspect]
     Active Substance: CROFELEMER
     Indication: Gastrointestinal inflammation
     Dosage: 125 MG, BID
     Route: 048
     Dates: start: 20221202

REACTIONS (3)
  - Influenza [Unknown]
  - Product dose omission issue [Unknown]
  - Off label use [Unknown]
